FAERS Safety Report 9403811 (Version 1)
Quarter: 2013Q3

REPORT INFORMATION
  Report Type: Spontaneous
  Country: IL (occurrence: None)
  Receive Date: 20130712
  Receipt Date: 20130712
  Transmission Date: 20140515
  Serious: Yes (Other)
  Sender: FDA-Public Use
  Company Number: VAL_02632_2013

PATIENT
  Age: 38 Year
  Sex: Female

DRUGS (1)
  1. METOPROLOL (METOPROLOL-METOPROLOL TARTRATE) [Suspect]
     Indication: PRODUCT USED FOR UNKNOWN INDICATION

REACTIONS (7)
  - Cardiac failure [None]
  - Left ventricular dysfunction [None]
  - Tricuspid valve incompetence [None]
  - Mitral valve incompetence [None]
  - Premature labour [None]
  - Caesarean section [None]
  - Pulmonary congestion [None]
